FAERS Safety Report 8505783 (Version 2)
Quarter: 2013Q4

REPORT INFORMATION
  Report Type: Spontaneous
  Country: US (occurrence: US)
  Receive Date: 20120412
  Receipt Date: 20131210
  Transmission Date: 20140711
  Serious: Yes (Hospitalization, Other)
  Sender: FDA-Public Use
  Company Number: US-BAYER-2012-033424

PATIENT
  Age: 18 Year
  Sex: Female

DRUGS (2)
  1. YAZ [Suspect]
     Dosage: UNK
     Dates: start: 2008, end: 200912
  2. YASMIN [Suspect]
     Indication: CONTRACEPTION
     Dosage: UNK
     Dates: start: 2008, end: 200912

REACTIONS (9)
  - Gallbladder disorder [None]
  - Biliary dyskinesia [None]
  - Gallbladder pain [None]
  - Post cholecystectomy syndrome [None]
  - Gastrointestinal disorder [None]
  - Psychological trauma [None]
  - Injury [None]
  - Pain [None]
  - Anxiety [None]
